FAERS Safety Report 17664526 (Version 1)
Quarter: 2020Q2

REPORT INFORMATION
  Report Type: Spontaneous
  Country: US (occurrence: US)
  Receive Date: 20200413
  Receipt Date: 20200413
  Transmission Date: 20200713
  Serious: Yes (Life-Threatening, Hospitalization)
  Sender: FDA-Public Use
  Company Number: None

PATIENT
  Age: 81 Year
  Sex: Male
  Weight: 108.2 kg

DRUGS (1)
  1. AZITHROMYCIN (AZITHROMYCIN 250MG TAB) [Suspect]
     Active Substance: AZITHROMYCIN
     Indication: CHRONIC OBSTRUCTIVE PULMONARY DISEASE
     Route: 048
     Dates: start: 20190613, end: 20190613

REACTIONS (4)
  - Stridor [None]
  - Pharyngeal swelling [None]
  - Respiratory distress [None]
  - Anaphylactic reaction [None]

NARRATIVE: CASE EVENT DATE: 20190613
